FAERS Safety Report 5869424-X (Version None)
Quarter: 2008Q3

REPORT INFORMATION
  Report Type: 
  Country: None (occurrence: None)
  Receive Date: 20080828
  Receipt Date: 20080813
  Transmission Date: 20090109
  Serious: Yes (Hospitalization, Other)
  Sender: FDA-Public Use
  Company Number: 2008002008

PATIENT
  Age: 57 Year
  Sex: Male

DRUGS (3)
  1. TARCEVA [Suspect]
     Indication: NON-SMALL CELL LUNG CANCER
     Dosage: 150 MG, QD, ORAL
     Route: 048
     Dates: start: 20080101, end: 20080701
  2. BONEFOS (CLODRONATE DISODIUM) [Concomitant]
  3. DHC (DIHYDROCODEINE BITARTRATE) [Concomitant]

REACTIONS (5)
  - CONJUNCTIVITIS [None]
  - DERMATITIS ACNEIFORM [None]
  - METASTASES TO LUNG [None]
  - PARONYCHIA [None]
  - PULMONARY MYCOSIS [None]
